FAERS Safety Report 7218679-8 (Version None)
Quarter: 2011Q1

REPORT INFORMATION
  Report Type: 
  Country: None (occurrence: None)
  Receive Date: 20110110
  Receipt Date: 20100802
  Transmission Date: 20110831
  Serious: Yes (Death)
  Sender: FDA-Public Use
  Company Number: US-ABBOTT-10P-163-0661087-00

PATIENT
  Age: 17 Year
  Sex: Male

DRUGS (4)
  1. ETHANOL [Suspect]
     Dates: start: 20061122, end: 20061122
  2. ALPRAZOLAM [Suspect]
     Dates: start: 20061122, end: 20061122
  3. VICODIN [Suspect]
     Dates: start: 20061122, end: 20061122
  4. OXYCODONE [Suspect]
     Dates: start: 20061122, end: 20061122

REACTIONS (2)
  - ACCIDENTAL OVERDOSE [None]
  - TOXICITY TO VARIOUS AGENTS [None]
